FAERS Safety Report 5273468-9 (Version None)
Quarter: 2007Q1

REPORT INFORMATION
  Report Type: 
  Country: None (occurrence: None)
  Receive Date: 20061219
  Receipt Date: 20061011
  Transmission Date: 20070707
  Serious: Yes (Hospitalization)
  Sender: FDA-Public Use
  Company Number: US-JNJFOC-20060505974

PATIENT
  Age: 23 Year
  Sex: Female
  Weight: 131.5431 kg

DRUGS (2)
  1. ORTHO EVRA [Suspect]
     Indication: CONTRACEPTION
     Dosage: 1 IN 1 WEEK, TRANSDERMAL
     Route: 062
     Dates: start: 20021001, end: 20040501
  2. XANAX [Concomitant]

REACTIONS (1)
  - DEEP VEIN THROMBOSIS [None]
